FAERS Safety Report 7230847-8 (Version None)
Quarter: 2011Q1

REPORT INFORMATION
  Report Type: 
  Country: None (occurrence: None)
  Receive Date: 20110118
  Receipt Date: 20110104
  Transmission Date: 20110831
  Serious: Yes (Hospitalization, Disabling, Other)
  Sender: FDA-Public Use
  Company Number: US-ROCHE-467342

PATIENT
  Sex: Male
  Weight: 93 kg

DRUGS (3)
  1. ELOCON [Concomitant]
     Indication: ECZEMA
     Dosage: DOSAGE REGIMEN REPORTED AS TWO TIMES DAILY, AS NEEDED.
     Route: 061
     Dates: start: 19970311
  2. DIPROLENE [Concomitant]
     Indication: ECZEMA
     Dosage: DOSAGE REGIMEN REPORTED AS TWO TIMES DAILY, AS NEEDED.
     Route: 061
     Dates: start: 19970423
  3. ACCUTANE [Suspect]
     Indication: ACNE
     Route: 048
     Dates: start: 19970212, end: 19970624

REACTIONS (9)
  - PSEUDOPOLYP [None]
  - COLITIS [None]
  - PROCTITIS ULCERATIVE [None]
  - CROHN'S DISEASE [None]
  - PHLEBITIS [None]
  - PULMONARY EMBOLISM [None]
  - ANAEMIA [None]
  - COLITIS ULCERATIVE [None]
  - INFLAMMATORY BOWEL DISEASE [None]
